FAERS Safety Report 17305592 (Version 1)
Quarter: 2020Q1

REPORT INFORMATION
  Report Type: Spontaneous
  Country: NL (occurrence: NL)
  Receive Date: 20200123
  Receipt Date: 20200123
  Transmission Date: 20200409
  Serious: Yes (Other)
  Sender: FDA-Public Use
  Company Number: NL-PFIZER INC-2020027177

PATIENT
  Sex: Male

DRUGS (6)
  1. METOPROLOL SUCCINATE RETARD [Concomitant]
     Dosage: 50 MG, 1X/DAY (1DD1)
     Dates: start: 20110301
  2. ACETYLSALICYLIC ACID [Concomitant]
     Active Substance: ASPIRIN
     Dosage: 80 MG, 1X/DAY (1DD1)
     Route: 048
     Dates: start: 20120629
  3. AMLODIPINE BESILATE [Suspect]
     Active Substance: AMLODIPINE BESYLATE
     Indication: ANGINA PECTORIS
     Dosage: 10 MG, 1X/DAY (1X PER DAY 1 TABLET)
     Route: 050
     Dates: start: 20190717, end: 20191209
  4. CANDESARTAN. [Concomitant]
     Active Substance: CANDESARTAN
     Dosage: 16 MG, 1X/DAY (1DD1)
     Dates: start: 20120814, end: 20191101
  5. ALFUZOSINE HCL [Concomitant]
     Active Substance: ALFUZOSIN HYDROCHLORIDE
     Dosage: 10 MG, 1X/DAY (1DD1)
     Dates: start: 20141216
  6. ISOSORBIDE DINITRATE. [Concomitant]
     Active Substance: ISOSORBIDE DINITRATE
     Dosage: 60 MG, 1X/DAY (1DD 60MG)
     Dates: start: 20190919

REACTIONS (2)
  - Migraine with aura [Recovered/Resolved]
  - Diplopia [Recovered/Resolved]
